FAERS Safety Report 23930033 (Version 1)
Quarter: 2024Q2

REPORT INFORMATION
  Report Type: Report from Study
  Country: US (occurrence: US)
  Receive Date: 20240601
  Receipt Date: 20240601
  Transmission Date: 20240716
  Serious: Yes (Other)
  Sender: FDA-Public Use
  Company Number: US-AUROBINDO-AUR-APL-2024-025688

PATIENT
  Age: 36 Year
  Sex: Female

DRUGS (6)
  1. CYCLOPHOSPHAMIDE [Suspect]
     Active Substance: CYCLOPHOSPHAMIDE
     Indication: B-cell lymphoma
     Dosage: UNK, VIA A PERIPHERALLY INSERTED CENTRAL CATHETER LINE IN HER RIGHT ARM
     Route: 065
  2. PREDNISONE [Suspect]
     Active Substance: PREDNISONE
     Indication: B-cell lymphoma
     Dosage: UNK,VIA A PERIPHERALLY INSERTED CENTRAL CATHETER LINE IN HER RIGHT ARM
     Route: 065
  3. DOXORUBICIN [Suspect]
     Active Substance: DOXORUBICIN
     Indication: B-cell lymphoma
     Dosage: UNK,VIA A PERIPHERALLY INSERTED CENTRAL CATHETER LINE IN HER RIGHT ARM
     Route: 065
  4. ETOPOSIDE [Suspect]
     Active Substance: ETOPOSIDE
     Indication: B-cell lymphoma
     Dosage: UNK,VIA A PERIPHERALLY INSERTED CENTRAL CATHETER LINE IN HER RIGHT ARM
     Route: 065
  5. RITUXIMAB [Suspect]
     Active Substance: RITUXIMAB
     Indication: B-cell lymphoma
     Dosage: UNK,VIA A PERIPHERALLY INSERTED CENTRAL CATHETER LINE IN HER RIGHT ARM
     Route: 065
  6. VINCRISTINE SULFATE [Suspect]
     Active Substance: VINCRISTINE SULFATE
     Indication: B-cell lymphoma
     Dosage: UNK,VIA A PERIPHERALLY INSERTED CENTRAL CATHETER LINE IN HER RIGHT ARM
     Route: 065

REACTIONS (4)
  - Pericardial effusion malignant [Unknown]
  - Pericarditis [Unknown]
  - Mucosal inflammation [Unknown]
  - Exposure during pregnancy [Unknown]
